FAERS Safety Report 16521855 (Version 4)
Quarter: 2019Q4

REPORT INFORMATION
  Report Type: Spontaneous
  Country: US (occurrence: US)
  Receive Date: 20190702
  Receipt Date: 20191016
  Transmission Date: 20200122
  Serious: Yes (Death, Hospitalization)
  Sender: FDA-Public Use
  Company Number: US-PFIZER INC-2018253374

PATIENT
  Age: 86 Year
  Sex: Female
  Weight: 45.36 kg

DRUGS (2)
  1. IBRANCE [Suspect]
     Active Substance: PALBOCICLIB
     Indication: POST PROCEDURAL COMPLICATION
     Dosage: 75 MG, CYCLIC (ONCE DAILY FOR 21 DAYS ON 7 DAYS OFF)
     Route: 048
  2. IBRANCE [Suspect]
     Active Substance: PALBOCICLIB
     Indication: MALIGNANT NERVOUS SYSTEM NEOPLASM

REACTIONS (5)
  - Off label use [Unknown]
  - Hypoaesthesia [Unknown]
  - Peripheral coldness [Unknown]
  - Sepsis [Fatal]
  - Product use in unapproved indication [Unknown]
